FAERS Safety Report 8791243 (Version 1)
Quarter: 2012Q4

REPORT INFORMATION
  Report Type: Spontaneous
  Country: IE (occurrence: None)
  Receive Date: 20120912
  Receipt Date: 20120912
  Transmission Date: 20130627
  Serious: Yes (Hospitalization)
  Sender: FDA-Public Use
  Company Number: 2012SP001641

PATIENT
  Age: 78 Year
  Sex: Female

DRUGS (8)
  1. VANCOMYCIN [Suspect]
     Indication: DRUG USE FOR UNKNOWN INDICATION
     Route: 042
     Dates: start: 20120630, end: 20120703
  2. CEFTRIAXONE [Suspect]
     Indication: DRUG USE FOR UNKNOWN INDICATION
     Route: 042
     Dates: start: 20120630, end: 20120703
  3. ACYCLOVIR [Suspect]
     Indication: VIRAL MENINGITIS
     Route: 042
     Dates: start: 20120630, end: 20120703
  4. AMPICILLIN TRIHYDRATE [Suspect]
     Indication: DRUG USE FOR UNKNOWN INDICATION
     Route: 042
     Dates: start: 20120630, end: 20120703
  5. ASPIRIN [Suspect]
     Indication: DIABETES MELLITUS
  6. NYSTATIN [Suspect]
     Indication: DYSLIPIDEMIA
  7. LOXOPROFEN [Suspect]
     Indication: DRUG USE FOR UNKNOWN INDICATION
  8. PREGABALIN [Suspect]
     Indication: DRUG USE FOR UNKNOWN INDICATION

REACTIONS (7)
  - Renal failure acute [None]
  - Altered state of consciousness [None]
  - Depressed level of consciousness [None]
  - Logorrhoea [None]
  - Blood calcium decreased [None]
  - Restlessness [None]
  - Haemodialysis [None]
